FAERS Safety Report 8673944 (Version 2)
Quarter: 2012Q4

REPORT INFORMATION
  Report Type: 
  Country: PL (occurrence: PL)
  Receive Date: 20120719
  Receipt Date: 20121029
  Transmission Date: 20130627
  Serious: Yes (Hospitalization)
  Sender: FDA-Public Use
  Company Number: PL-ABBOTT-12P-129-0955571-00

PATIENT
  Age: 73 Year
  Sex: Male
  Weight: 114 kg

DRUGS (7)
  1. LIPANTHYL [Suspect]
     Indication: BLOOD TRIGLYCERIDES INCREASED
     Route: 048
     Dates: start: 20120614, end: 20120629
  2. ACENOCOUMAROL [Suspect]
     Indication: ATRIAL FIBRILLATION
     Route: 048
     Dates: start: 2008, end: 20120629
  3. ACENOCOUMAROL [Suspect]
     Route: 048
     Dates: start: 20120703
  4. BISOCARD [Concomitant]
     Indication: HYPERTENSION
     Route: 048
  5. ATACAND [Concomitant]
     Indication: HYPERTENSION
     Route: 048
  6. DIAPREL [Concomitant]
     Indication: DIABETES MELLITUS
     Route: 048
  7. GLUCOPHAGE [Concomitant]
     Indication: DIABETES MELLITUS
     Route: 048

REACTIONS (2)
  - International normalised ratio increased [Recovered/Resolved]
  - Epistaxis [Recovered/Resolved]
